FAERS Safety Report 24569998 (Version 1)
Quarter: 2024Q4

REPORT INFORMATION
  Report Type: Spontaneous
  Country: US (occurrence: US)
  Receive Date: 20241031
  Receipt Date: 20241031
  Transmission Date: 20250114
  Serious: Yes (Other)
  Sender: PFIZER
  Company Number: US-PFIZER INC-202400021619

PATIENT
  Age: 42 Year
  Sex: Male

DRUGS (1)
  1. OXBRYTA [Suspect]
     Active Substance: VOXELOTOR
     Indication: Sickle cell disease
     Dosage: 1500 MG, DAILY (500MG 3 TABLETS ONCE DAILY)
     Route: 048
     Dates: start: 202007

REACTIONS (3)
  - Sickle cell anaemia with crisis [Unknown]
  - Pain [Unknown]
  - Product dose omission issue [Unknown]
